FAERS Safety Report 5551941-3 (Version None)
Quarter: 2007Q4

REPORT INFORMATION
  Report Type: 
  Country: None (occurrence: None)
  Receive Date: 20071212
  Receipt Date: 20071130
  Transmission Date: 20080405
  Serious: Yes (Other)
  Sender: FDA-Public Use
  Company Number: US-PFIZER INC-2007101499

PATIENT
  Sex: Female
  Weight: 38.636 kg

DRUGS (3)
  1. SPIRONOLACTONE [Suspect]
     Indication: POLYURIA
  2. ATENOLOL [Concomitant]
  3. ASPIRIN [Concomitant]

REACTIONS (3)
  - DRUG INEFFECTIVE [None]
  - DYSPNOEA [None]
  - PULMONARY OEDEMA [None]
